FAERS Safety Report 10229367 (Version 1)
Quarter: 2014Q2

REPORT INFORMATION
  Report Type: Report from Study
  Country: IT (occurrence: IT)
  Receive Date: 20140611
  Receipt Date: 20140611
  Transmission Date: 20141212
  Serious: Yes (Other)
  Sender: FDA-Public Use
  Company Number: IT-ROCHE-1412693

PATIENT
  Sex: 0

DRUGS (5)
  1. MYCOPHENOLATE MOFETIL [Suspect]
     Indication: NEPHROTIC SYNDROME
     Route: 065
  2. CYCLOSPORIN [Suspect]
     Indication: NEPHROTIC SYNDROME
     Route: 065
  3. TACROLIMUS [Suspect]
     Indication: NEPHROTIC SYNDROME
     Route: 065
  4. CYCLOPHOSPHAMIDE [Suspect]
     Indication: NEPHROTIC SYNDROME
     Route: 065
  5. AZATHIOPRINE [Suspect]
     Indication: NEPHROTIC SYNDROME
     Route: 065

REACTIONS (7)
  - Gastroenteritis [Recovered/Resolved]
  - Varicella [Recovered/Resolved]
  - Influenza like illness [Recovered/Resolved]
  - Infection [Recovered/Resolved]
  - Convulsion [Recovered/Resolved]
  - Biliary colic [Recovered/Resolved]
  - Malignant melanoma [Recovered/Resolved]
